FAERS Safety Report 9719136 (Version 3)
Quarter: 2014Q2

REPORT INFORMATION
  Report Type: Spontaneous
  Country: CN (occurrence: CN)
  Receive Date: 20131127
  Receipt Date: 20140502
  Transmission Date: 20141212
  Serious: Yes (Hospitalization, Other)
  Sender: FDA-Public Use
  Company Number: ALCN2013CN005873

PATIENT
  Age: 44 Year
  Sex: Female
  Weight: 66 kg

DRUGS (1)
  1. TOBREX [Suspect]
     Indication: CONJUNCTIVITIS
     Dosage: 2 GTT, TID
     Route: 047
     Dates: start: 20130413, end: 20130414

REACTIONS (10)
  - Stevens-Johnson syndrome [Recovered/Resolved with Sequelae]
  - Corneal epithelium defect [Recovered/Resolved with Sequelae]
  - Corneal erosion [Not Recovered/Not Resolved]
  - Vasculitis [Not Recovered/Not Resolved]
  - Erythema of eyelid [Recovered/Resolved with Sequelae]
  - Eyelid oedema [Not Recovered/Not Resolved]
  - Pyrexia [Recovered/Resolved with Sequelae]
  - Dry eye [Not Recovered/Not Resolved]
  - Aphthous stomatitis [Recovered/Resolved with Sequelae]
  - Conjunctivitis allergic [Recovered/Resolved with Sequelae]
